FAERS Safety Report 6665677-9 (Version None)
Quarter: 2010Q2

REPORT INFORMATION
  Report Type: 
  Country: None (occurrence: None)
  Receive Date: 20100402
  Receipt Date: 20100324
  Transmission Date: 20101027
  Serious: Yes (Hospitalization)
  Sender: FDA-Public Use
  Company Number: US-JNJFOC-20100110829

PATIENT
  Sex: Female
  Weight: 85.73 kg

DRUGS (12)
  1. TYLENOL-500 [Suspect]
     Indication: ARTHRALGIA
     Route: 048
  2. TYLENOL-500 [Suspect]
     Indication: HEADACHE
     Route: 048
  3. LANTUS [Concomitant]
     Indication: DIABETES MELLITUS
  4. LANTUS [Concomitant]
  5. METFORMIN (GLUCOPHAGE) [Concomitant]
     Indication: DIABETES MELLITUS
  6. VERAPAMIL [Concomitant]
     Indication: HYPERTENSION
  7. TRICOR [Concomitant]
     Indication: BLOOD CHOLESTEROL INCREASED
  8. GLIMEPIRIDE [Concomitant]
     Indication: DIABETES MELLITUS
  9. THYROID TAB [Concomitant]
     Indication: THYROID DISORDER
  10. FUROSEMIDE [Concomitant]
     Indication: HYPERTENSION
  11. LEXAPRO [Concomitant]
     Indication: DEPRESSION
  12. OTHER THERAPEUTIC PRODUCTS [Concomitant]
     Indication: HYPERTONIC BLADDER

REACTIONS (7)
  - ASTHENIA [None]
  - DECREASED APPETITE [None]
  - DIARRHOEA [None]
  - DIZZINESS [None]
  - NAUSEA [None]
  - PRODUCT QUALITY ISSUE [None]
  - VOMITING [None]
